FAERS Safety Report 18203781 (Version 2)
Quarter: 2020Q4

REPORT INFORMATION
  Report Type: Spontaneous
  Country: US (occurrence: US)
  Receive Date: 20200827
  Receipt Date: 20201230
  Transmission Date: 20210113
  Serious: Yes (Other)
  Sender: FDA-Public Use
  Company Number: US-PURDUE PHARMA-USA-2020-0157190

PATIENT
  Sex: Male

DRUGS (2)
  1. OXYCONTIN [Suspect]
     Active Substance: OXYCODONE HYDROCHLORIDE
     Indication: PAIN
     Dosage: 80 MG, BID
     Route: 048
     Dates: start: 2010, end: 2016
  2. OXYCODONE HYDROCHLORIDE (SIMILAR TO NDA 22-272) [Suspect]
     Active Substance: OXYCODONE HYDROCHLORIDE
     Indication: PAIN
     Dosage: 30 MG, 120 TABLETS, EVERY 2 WEEKS
     Route: 048
     Dates: start: 2010, end: 2016

REACTIONS (5)
  - Vasculitis [Unknown]
  - Hepatic cirrhosis [Unknown]
  - Liver injury [Unknown]
  - Non-Hodgkin^s lymphoma [Unknown]
  - Abdominal pain [Unknown]
